FAERS Safety Report 21209835 (Version 4)
Quarter: 2022Q4

REPORT INFORMATION
  Report Type: Report from Study
  Country: US (occurrence: US)
  Receive Date: 20220813
  Receipt Date: 20221202
  Transmission Date: 20230112
  Serious: No
  Sender: FDA-Public Use
  Company Number: US-NOVARTISTESTPH-NVSC2022US183850

PATIENT
  Sex: Male

DRUGS (1)
  1. COSENTYX [Suspect]
     Active Substance: SECUKINUMAB
     Indication: Psoriatic arthropathy
     Dosage: 300 MG, QW (QW FOR 5 WEEKS THEN QMO)
     Route: 058

REACTIONS (4)
  - Genital cyst [Unknown]
  - Psoriasis [Unknown]
  - Product storage error [Unknown]
  - Drug ineffective [Unknown]
